FAERS Safety Report 7535656-8 (Version None)
Quarter: 2011Q2

REPORT INFORMATION
  Report Type: 
  Country: None (occurrence: None)
  Receive Date: 20110524
  Receipt Date: 20110411
  Transmission Date: 20111010
  Serious: No
  Sender: FDA-Public Use
  Company Number: 031026

PATIENT
  Sex: Male
  Weight: 54.4 kg

DRUGS (1)
  1. CIMZIA [Suspect]
     Indication: CROHN'S DISEASE
     Dosage: 400 MG 1X/28 DAYS SUBCUTANEOUS
     Route: 058
     Dates: start: 20100101, end: 20110312

REACTIONS (3)
  - DRUG INEFFECTIVE [None]
  - FATIGUE [None]
  - ABDOMINAL PAIN [None]
